FAERS Safety Report 7379002-1 (Version None)
Quarter: 2011Q1

REPORT INFORMATION
  Report Type: 
  Country: None (occurrence: None)
  Receive Date: 20110328
  Receipt Date: 20110317
  Transmission Date: 20110831
  Serious: Yes (Death, Hospitalization)
  Sender: FDA-Public Use
  Company Number: US-BAXTER-2011BH007204

PATIENT
  Age: 73 Year
  Sex: Male

DRUGS (2)
  1. DIANEAL [Suspect]
     Indication: PERITONEAL DIALYSIS
     Route: 033
     Dates: end: 20101128
  2. EXTRANEAL [Suspect]
     Indication: FLUID IMBALANCE
     Route: 033
     Dates: start: 20100729, end: 20100922

REACTIONS (6)
  - CEREBROVASCULAR ACCIDENT [None]
  - ABDOMINAL PAIN [None]
  - HEADACHE [None]
  - ARTERITIS [None]
  - HAEMOGLOBIN DECREASED [None]
  - VASCULITIS [None]
